FAERS Safety Report 11459977 (Version 1)
Quarter: 2015Q3

REPORT INFORMATION
  Report Type: Spontaneous
  Country: US (occurrence: US)
  Receive Date: 20150904
  Receipt Date: 20150904
  Transmission Date: 20151125
  Serious: Yes (Other)
  Sender: FDA-Public Use
  Company Number: US-PURDUE PHARMA-USA-2015-0125967

PATIENT
  Age: 72 Year
  Sex: Male

DRUGS (2)
  1. GABAPENTIN. [Concomitant]
     Active Substance: GABAPENTIN
     Indication: NEUROPATHY PERIPHERAL
     Dosage: 2X600 MG, TID
     Route: 048
     Dates: start: 2010
  2. DILAUDID [Suspect]
     Active Substance: HYDROMORPHONE HYDROCHLORIDE
     Indication: DIABETIC NEUROPATHY
     Dosage: 4 MG, TID
     Route: 048
     Dates: start: 201507

REACTIONS (4)
  - Suicidal ideation [Recovered/Resolved]
  - Activities of daily living impaired [Recovered/Resolved]
  - Pain [Recovered/Resolved]
  - Psychomotor hyperactivity [Unknown]
